FAERS Safety Report 7514626-X (Version None)
Quarter: 2011Q2

REPORT INFORMATION
  Report Type: 
  Country: None (occurrence: None)
  Receive Date: 20110520
  Receipt Date: 20110510
  Transmission Date: 20111010
  Serious: Yes (Hospitalization)
  Sender: FDA-Public Use
  Company Number: 2011SP001587

PATIENT
  Age: 41 Year
  Sex: Male

DRUGS (4)
  1. LATUDA [Suspect]
     Dosage: 80 MG
     Dates: start: 20110101
  2. SYHNTHROID [Concomitant]
  3. SEROQUEL [Concomitant]
  4. DEPAKOTE ER [Concomitant]

REACTIONS (1)
  - MIGRAINE [None]
